FAERS Safety Report 7462585-0 (Version None)
Quarter: 2011Q2

REPORT INFORMATION
  Report Type: 
  Country: None (occurrence: None)
  Receive Date: 20110506
  Receipt Date: 20110427
  Transmission Date: 20111010
  Serious: Yes (Hospitalization)
  Sender: FDA-Public Use
  Company Number: US-BAYER-2011-037259

PATIENT
  Sex: Female

DRUGS (3)
  1. DROSPIRENONE AND ETHINYL ESTRADIOL [Suspect]
     Dosage: UNK
     Dates: start: 20050401
  2. YASMIN [Suspect]
     Dosage: UNK
     Dates: start: 20050401
  3. YAZ [Suspect]
     Dosage: UNK
     Dates: start: 20050401

REACTIONS (5)
  - GALLBLADDER DISORDER [None]
  - PAIN [None]
  - ANHEDONIA [None]
  - ANXIETY [None]
  - INJURY [None]
